FAERS Safety Report 11559532 (Version 1)
Quarter: 2015Q3

REPORT INFORMATION
  Report Type: Spontaneous
  Country: US (occurrence: None)
  Receive Date: 20150925
  Receipt Date: 20150925
  Transmission Date: 20151125
  Serious: Yes (Hospitalization, Disabling, Other)
  Sender: FDA-Public Use
  Company Number: None

PATIENT
  Age: 44 Year
  Sex: Female
  Weight: 63.5 kg

DRUGS (6)
  1. LACTULOSE. [Concomitant]
     Active Substance: LACTULOSE
  2. SORIATANE [Suspect]
     Active Substance: ACITRETIN
     Indication: PSORIASIS
     Dosage: TAKEN BY MOUTH
     Dates: start: 20130121, end: 20130125
  3. ALDACTONE [Concomitant]
     Active Substance: SPIRONOLACTONE
  4. VIT, D [Concomitant]
  5. LASIX [Concomitant]
     Active Substance: FUROSEMIDE
  6. XIFAXAN [Concomitant]
     Active Substance: RIFAXIMIN

REACTIONS (3)
  - Alcohol interaction [None]
  - Blood alcohol increased [None]
  - Hepatic cirrhosis [None]

NARRATIVE: CASE EVENT DATE: 20130118
